FAERS Safety Report 19207089 (Version 1)
Quarter: 2021Q2

REPORT INFORMATION
  Report Type: Spontaneous
  Country: US (occurrence: US)
  Receive Date: 20210503
  Receipt Date: 20210503
  Transmission Date: 20210717
  Serious: Yes (Other)
  Sender: FDA-Public Use
  Company Number: US-HQ SPECIALTY-US-2021INT000063

PATIENT
  Sex: Male

DRUGS (9)
  1. MIDAZOLAM. [Suspect]
     Active Substance: MIDAZOLAM
     Indication: SPINAL ANAESTHESIA
     Dosage: UNK
     Route: 065
  2. BUPIVACAINE. [Suspect]
     Active Substance: BUPIVACAINE
     Indication: SPINAL ANAESTHESIA
     Dosage: DOSE RANGE OF 0.8 MG/KG PLUS MINUS 0.2 MG OF 0.5% BUPIVACAINE WITH A MAXIMUM OF 1.4 ML (7 MG)
     Route: 037
  3. DEXMEDETOMIDINE HYDROCHLORIDE. [Suspect]
     Active Substance: DEXMEDETOMIDINE HYDROCHLORIDE
     Indication: SPINAL ANAESTHESIA
  4. LIDOCAINE. [Suspect]
     Active Substance: LIDOCAINE
     Indication: LOCAL ANAESTHESIA
     Dosage: STRENGTH; 4%
     Route: 061
  5. FENTANYL. [Suspect]
     Active Substance: FENTANYL
     Indication: SEDATIVE THERAPY
     Dosage: STRENGTH: 1?2 MCG/KG
     Route: 045
  6. DEXMEDETOMIDINE HYDROCHLORIDE. [Suspect]
     Active Substance: DEXMEDETOMIDINE HYDROCHLORIDE
     Indication: SEDATIVE THERAPY
     Dosage: DOSE: 4?5 MCG/KG
     Route: 045
  7. FENTANYL. [Suspect]
     Active Substance: FENTANYL
     Indication: SPINAL ANAESTHESIA
  8. LIDOCAINE. [Suspect]
     Active Substance: LIDOCAINE
     Indication: SPINAL ANAESTHESIA
     Dosage: STRENGTH; 1%, LESS THAN 1 %
     Route: 058
  9. CHLORHEXIDINE [Suspect]
     Active Substance: CHLORHEXIDINE
     Indication: SPINAL ANAESTHESIA
     Dosage: UNK
     Route: 065

REACTIONS (6)
  - Product use issue [Unknown]
  - Product administered to patient of inappropriate age [Unknown]
  - Hyperthermia [Recovered/Resolved]
  - Tachycardia [Recovered/Resolved]
  - Urticaria [Recovered/Resolved]
  - Hypersensitivity [Recovered/Resolved]
